FAERS Safety Report 16924999 (Version 1)
Quarter: 2019Q4

REPORT INFORMATION
  Report Type: Spontaneous
  Country: US (occurrence: US)
  Receive Date: 20191016
  Receipt Date: 20191016
  Transmission Date: 20200122
  Serious: No
  Sender: FDA-Public Use
  Company Number: US-PFIZER INC-2019447863

PATIENT
  Sex: Male

DRUGS (1)
  1. VYNDAQEL [Suspect]
     Active Substance: TAFAMIDIS MEGLUMINE
     Dosage: 4 DF, DAILY

REACTIONS (5)
  - Diarrhoea [Unknown]
  - Frequent bowel movements [Unknown]
  - Pre-existing condition improved [Unknown]
  - Weight decreased [Unknown]
  - Therapeutic response unexpected [Unknown]
